FAERS Safety Report 12392282 (Version 1)
Quarter: 2016Q2

REPORT INFORMATION
  Report Type: Spontaneous
  Country: US (occurrence: None)
  Receive Date: 20160520
  Receipt Date: 20160520
  Transmission Date: 20160815
  Serious: No
  Sender: FDA-Public Use
  Company Number: None

PATIENT
  Sex: Male
  Weight: 113.4 kg

DRUGS (1)
  1. ALFUZOSIN ER 10MG [Suspect]
     Active Substance: ALFUZOSIN
     Indication: BENIGN PROSTATIC HYPERPLASIA
     Dosage: 1 ML EVERY 12 WEEKS INTRAMUSCULAR
     Route: 048

REACTIONS (1)
  - Drug ineffective [None]
